FAERS Safety Report 6517006-9 (Version None)
Quarter: 2009Q4

REPORT INFORMATION
  Report Type: 
  Country: None (occurrence: None)
  Receive Date: 20091223
  Receipt Date: 20091214
  Transmission Date: 20100525
  Serious: Yes (Life-Threatening)
  Sender: FDA-Public Use
  Company Number: GXKR2009US13444

PATIENT
  Age: 65 Year
  Sex: Male

DRUGS (8)
  1. PREDNISONE TAB [Suspect]
     Dosage: HIGH DOSE AT DIAGNOSIS
     Route: 065
     Dates: start: 19960101, end: 20011001
  2. PREDNISONE TAB [Suspect]
     Dosage: 9-30 MG/DAY
     Route: 065
  3. PREDNISONE TAB [Suspect]
     Dosage: 6-35 MG/DAY
     Route: 065
  4. AZATHIOPRINE [Suspect]
     Dosage: DOSE TITRATED TO 200 MG/DAY
     Route: 065
  5. METHOTREXATE (NGX) [Suspect]
     Dosage: 7.5-30 MG/WEEK
     Route: 065
  6. METHOTREXATE (NGX) [Suspect]
     Dosage: HIGH DOSE 4 CYCLES
     Route: 065
     Dates: start: 20070501
  7. METHOTREXATE (NGX) [Suspect]
     Dosage: HIGH DOSE 7 CYCLES
     Route: 065
     Dates: start: 20070601
  8. CELLCEPT [Suspect]
     Dosage: DOSE TITRATED TO 2,500 MG/DAY
     Route: 065
     Dates: start: 20010101

REACTIONS (9)
  - APHASIA [None]
  - ATAXIA [None]
  - BRAIN OEDEMA [None]
  - DIPLOPIA [None]
  - EPSTEIN-BARR VIRUS ASSOCIATED LYMPHOPROLIFERATIVE DISORDER [None]
  - GAIT DISTURBANCE [None]
  - MOOD SWINGS [None]
  - PYREXIA [None]
  - WEIGHT DECREASED [None]
